FAERS Safety Report 24265940 (Version 1)
Quarter: 2024Q3

REPORT INFORMATION
  Report Type: Spontaneous
  Country: DE (occurrence: DE)
  Receive Date: 20240830
  Receipt Date: 20240830
  Transmission Date: 20241017
  Serious: Yes (Hospitalization, Other)
  Sender: NOVO NORDISK
  Company Number: DE-NOVOPROD-1272287

PATIENT
  Age: 240 Month
  Sex: Female

DRUGS (1)
  1. NOVORAPID [Suspect]
     Active Substance: INSULIN ASPART
     Indication: Product used for unknown indication
     Dosage: 25 IU, QD
     Route: 058

REACTIONS (3)
  - Ketoacidosis [Unknown]
  - Blood glucose increased [Unknown]
  - Wrong technique in product usage process [Unknown]
